FAERS Safety Report 8797360 (Version 1)
Quarter: 2012Q4

REPORT INFORMATION
  Report Type: Report from Study
  Country: PT (occurrence: PT)
  Receive Date: 20120919
  Receipt Date: 20120919
  Transmission Date: 20130627
  Serious: Yes (Other)
  Sender: FDA-Public Use
  Company Number: PT-ROCHE-1101692

PATIENT

DRUGS (2)
  1. AVASTIN [Suspect]
     Indication: METASTATIC RENAL CELL CARCINOMA
     Route: 065
  2. ROFERON-A [Suspect]
     Indication: METASTATIC RENAL CELL CARCINOMA

REACTIONS (8)
  - Hypertension [Unknown]
  - Haemorrhage [Unknown]
  - Renal failure [Unknown]
  - Fatigue [Unknown]
  - Myalgia [Unknown]
  - Pyrexia [Unknown]
  - Influenza [Unknown]
  - Nervous system disorder [Unknown]
